FAERS Safety Report 6814939-0 (Version None)
Quarter: 2010Q3

REPORT INFORMATION
  Report Type: 
  Country: None (occurrence: None)
  Receive Date: 20100702
  Receipt Date: 20100628
  Transmission Date: 20110219
  Serious: Yes (Other)
  Sender: FDA-Public Use
  Company Number: NZ-SANOFI-AVENTIS-2010SA037621

PATIENT
  Sex: Male

DRUGS (5)
  1. DOCETAXEL [Suspect]
     Route: 041
  2. PREDNISOLONE [Concomitant]
     Route: 048
  3. DEXAMETHASONE [Concomitant]
     Indication: PREMEDICATION
  4. POLYCROL [Concomitant]
     Indication: ANTACID THERAPY
  5. ONDANSETRON [Concomitant]
     Route: 042

REACTIONS (3)
  - CYSTITIS HAEMORRHAGIC [None]
  - DYSURIA [None]
  - HAEMATURIA [None]
